FAERS Safety Report 19308822 (Version 1)
Quarter: 2021Q2

REPORT INFORMATION
  Report Type: Spontaneous
  Country: CN (occurrence: CN)
  Receive Date: 20210526
  Receipt Date: 20210526
  Transmission Date: 20210717
  Serious: Yes (Death, Hospitalization)
  Sender: FDA-Public Use
  Company Number: CN-EISAI MEDICAL RESEARCH-EC-2021-093189

PATIENT
  Age: 54 Year
  Sex: Male

DRUGS (2)
  1. PEMBROLIZUMAB. [Concomitant]
     Active Substance: PEMBROLIZUMAB
     Indication: HEPATIC CANCER
     Dosage: DOSE UNKNOWN
     Route: 042
     Dates: start: 20191018
  2. LENVATINIB [Suspect]
     Active Substance: LENVATINIB
     Indication: HEPATIC CANCER
     Dosage: DOSE AND FREQUENCY UNKNOWN
     Route: 048
     Dates: start: 201910

REACTIONS (2)
  - Skin lesion [Recovered/Resolved]
  - Anal pruritus [Recovered/Resolved]

NARRATIVE: CASE EVENT DATE: 201910
